FAERS Safety Report 8448852-2 (Version None)
Quarter: 2012Q2

REPORT INFORMATION
  Report Type: 
  Country: None (occurrence: None)
  Receive Date: 20120619
  Receipt Date: 20120608
  Transmission Date: 20120825
  Serious: Yes (Life-Threatening)
  Sender: FDA-Public Use
  Company Number: JP-TEVA-330963ISR

PATIENT
  Sex: Male
  Weight: 53.3 kg

DRUGS (6)
  1. NICORANTA,TAB [Concomitant]
     Indication: ANGINA PECTORIS
     Dosage: 15 MILLIGRAM;
     Route: 048
  2. CLINDAMYCIN [Suspect]
     Indication: LUNG INFECTION
     Dosage: 1200 MILLIGRAM;
     Route: 041
     Dates: start: 20120227, end: 20120314
  3. CEFTRIAXONE [Suspect]
     Indication: LUNG INFECTION
     Dosage: 2 GRAM;
     Route: 041
     Dates: start: 20120226, end: 20120319
  4. PLAVIX,TAB [Concomitant]
     Indication: ANTICOAGULANT THERAPY
     Dosage: 75 MILLIGRAM;
     Route: 048
  5. ENALIN TABLETS [Concomitant]
     Indication: MYOCARDIAL INFARCTION
     Dosage: 2.5 MILLIGRAM;
     Route: 048
  6. ASPIRIN [Concomitant]
     Indication: ANTICOAGULANT THERAPY
     Dosage: 100 MILLIGRAM;
     Route: 048

REACTIONS (2)
  - NEUTROPHIL COUNT DECREASED [None]
  - PLATELET COUNT DECREASED [None]
